FAERS Safety Report 7587542-5 (Version None)
Quarter: 2011Q3

REPORT INFORMATION
  Report Type: 
  Country: None (occurrence: None)
  Receive Date: 20110704
  Receipt Date: 20110620
  Transmission Date: 20111222
  Serious: Yes (Other)
  Sender: FDA-Public Use
  Company Number: PHHY2011US55565

PATIENT

DRUGS (1)
  1. DIOVAN [Suspect]

REACTIONS (2)
  - ARRHYTHMIA [None]
  - TACHYCARDIA [None]
